FAERS Safety Report 17464110 (Version 1)
Quarter: 2020Q1

REPORT INFORMATION
  Report Type: Spontaneous
  Country: GR (occurrence: GR)
  Receive Date: 20200226
  Receipt Date: 20200226
  Transmission Date: 20200409
  Serious: Yes (Other)
  Sender: FDA-Public Use
  Company Number: GR-FRESENIUS KABI-FK202001825

PATIENT
  Age: 30 Week
  Sex: Female

DRUGS (6)
  1. FILGRASTIM [Suspect]
     Active Substance: FILGRASTIM
     Indication: MATERNAL CANCER IN PREGNANCY
     Route: 064
  2. DEXAMETHASONE INJECTION (MANUFACTURER UNKNOWN) [Suspect]
     Active Substance: DEXAMETHASONE
     Route: 064
  3. DOXORUBICIN (MANUFACTURER UNKNOWN) [Suspect]
     Active Substance: DOXORUBICIN
     Indication: MATERNAL CANCER IN PREGNANCY
     Route: 064
  4. VINCRISTINE [Suspect]
     Active Substance: VINCRISTINE
     Indication: MATERNAL CANCER IN PREGNANCY
     Route: 064
  5. DEXAMETHASONE INJECTION (MANUFACTURER UNKNOWN) [Suspect]
     Active Substance: DEXAMETHASONE
     Indication: MATERNAL CANCER IN PREGNANCY
     Route: 064
  6. ALLOPURINOL. [Suspect]
     Active Substance: ALLOPURINOL
     Indication: MATERNAL CANCER IN PREGNANCY
     Route: 064

REACTIONS (4)
  - Maternal drugs affecting foetus [Unknown]
  - Cardiac failure [Unknown]
  - Placental insufficiency [Unknown]
  - Cardiotoxicity [Unknown]
